FAERS Safety Report 7377245-4 (Version None)
Quarter: 2011Q1

REPORT INFORMATION
  Report Type: 
  Country: None (occurrence: None)
  Receive Date: 20110315
  Receipt Date: 20110225
  Transmission Date: 20110831
  Serious: Yes (Other)
  Sender: FDA-Public Use
  Company Number: 2011P1004684

PATIENT
  Age: 59 Year
  Sex: Female

DRUGS (2)
  1. PRILOSEC [Concomitant]
  2. MOMETASONE FUROATE CREAM USP 0.1% (NO PREF. NAME) [Suspect]
     Indication: HYPERSENSITIVITY
     Dosage: 1 APPLICATION;X1;TOP
     Route: 061
     Dates: start: 20110219, end: 20110219

REACTIONS (3)
  - HYPERSENSITIVITY [None]
  - CHEMICAL INJURY [None]
  - PRODUCT GEL FORMATION [None]
